FAERS Safety Report 6615860-3 (Version None)
Quarter: 2010Q1

REPORT INFORMATION
  Report Type: 
  Country: None (occurrence: None)
  Receive Date: 20100305
  Receipt Date: 20100301
  Transmission Date: 20100710
  Serious: Yes (Hospitalization, Other)
  Sender: FDA-Public Use
  Company Number: US-TEVA-219652USA

PATIENT
  Sex: Female

DRUGS (4)
  1. COPAXONE [Suspect]
     Indication: MULTIPLE SCLEROSIS
     Route: 058
     Dates: start: 20081201, end: 20091228
  2. ZONISAMIDE [Concomitant]
  3. ESCITALOPRAM OXALATE [Concomitant]
  4. OXYBUTYNIN CHLORIDE [Concomitant]

REACTIONS (3)
  - NO THERAPEUTIC RESPONSE [None]
  - PEMPHIGOID [None]
  - STEVENS-JOHNSON SYNDROME [None]
